FAERS Safety Report 9346730 (Version 1)
Quarter: 2013Q2

REPORT INFORMATION
  Report Type: Other
  Country: GB (occurrence: GB)
  Receive Date: 20130613
  Receipt Date: 20130613
  Transmission Date: 20140414
  Serious: Yes (Hospitalization)
  Sender: FDA-Public Use
  Company Number: GB-WATSON-2013-10176

PATIENT
  Age: 37 Year
  Sex: Female

DRUGS (3)
  1. SERTRALINE HYDROCHLORIDE (UNKNOWN) [Suspect]
     Indication: DEPRESSION
     Dosage: 100 MG, UNK, TAKEN IN THE MORNING, ACUTE PRESCRIPTION FROM GP, START DATE UNCLEAR
     Route: 048
  2. NAPROXEN (UNKNOWN) [Suspect]
     Indication: PRODUCT USED FOR UNKNOWN INDICATION
     Dosage: 50 MG, BID
     Route: 048
  3. OXYCODONE [Concomitant]
     Indication: INTERVERTEBRAL DISC PROTRUSION
     Dosage: 120 MG, BID, OXYCONTIN MR
     Route: 048

REACTIONS (2)
  - Gastritis [Recovering/Resolving]
  - Abdominal pain upper [Unknown]
